FAERS Safety Report 11629519 (Version 1)
Quarter: 2015Q4

REPORT INFORMATION
  Report Type: Spontaneous
  Country: BD (occurrence: None)
  Receive Date: 20151013
  Receipt Date: 20151013
  Transmission Date: 20160304
  Serious: No
  Sender: FDA-Public Use
  Company Number: None

PATIENT

DRUGS (1)
  1. FINASTERIDE 1 MG [Suspect]
     Active Substance: FINASTERIDE

REACTIONS (1)
  - Testicular pain [None]
